FAERS Safety Report 17204472 (Version 1)
Quarter: 2019Q4

REPORT INFORMATION
  Report Type: Spontaneous
  Country: DE (occurrence: DE)
  Receive Date: 20191226
  Receipt Date: 20191226
  Transmission Date: 20200122
  Serious: Yes (Hospitalization)
  Sender: FDA-Public Use
  Company Number: DE-JNJFOC-20191236893

PATIENT
  Age: 86 Year
  Sex: Female

DRUGS (10)
  1. ELIQUIS [Concomitant]
     Active Substance: APIXABAN
     Dosage: 2.5 MG, 1-0-1-0, TABLETTEN
     Route: 048
  2. PANTOPRAZOL [Concomitant]
     Active Substance: PANTOPRAZOLE SODIUM
     Dosage: 40 MG, 1-0-0-0, TABLETTEN
     Route: 048
  3. METOPROLOLSUCCINAT 1A FARMA [Concomitant]
     Active Substance: METOPROLOL SUCCINATE
     Indication: PRODUCT USED FOR UNKNOWN INDICATION
     Dosage: 47.5 MG, 1-0-1-0, TABLETTEN
     Route: 048
  4. CALCI D3 [Concomitant]
     Active Substance: CALCIUM\CHOLECALCIFEROL
     Dosage: 1000/880 MG/IE, 1-0-0-0
     Route: 048
  5. DUROGESIC SMAT [Suspect]
     Active Substance: FENTANYL
     Indication: PRODUCT USED FOR UNKNOWN INDICATION
     Dosage: 50  G
     Route: 062
  6. METAMIZOL HEXAL [Concomitant]
     Active Substance: METAMIZOLE SODIUM
     Dosage: 500 MG, 1-1-1-1, TABLETTEN
     Route: 048
  7. FUROSEMID [Concomitant]
     Active Substance: FUROSEMIDE
     Dosage: 20 MG, 1-0-0-0, TABLETTEN
     Route: 048
  8. EUTHYROX [Concomitant]
     Active Substance: LEVOTHYROXINE SODIUM
     Dosage: 100  G, 1-0-0-0, TABLETTEN
     Route: 048
  9. ESIDRIX [Concomitant]
     Active Substance: HYDROCHLOROTHIAZIDE
     Dosage: 50/25 MG, 0.5-0-0-0, TABLETTEN
     Route: 048
  10. JANUVIA [Concomitant]
     Active Substance: SITAGLIPTIN PHOSPHATE
     Dosage: 50 MG, 1-0-0-0, TABLETTEN
     Route: 048

REACTIONS (2)
  - Fall [Unknown]
  - Chest pain [Unknown]
